FAERS Safety Report 9310585 (Version 2)
Quarter: 2013Q2

REPORT INFORMATION
  Report Type: Spontaneous
  Country: US (occurrence: US)
  Receive Date: 20130527
  Receipt Date: 20130621
  Transmission Date: 20140414
  Serious: No
  Sender: FDA-Public Use
  Company Number: US-PFIZER INC-2013158935

PATIENT
  Age: 52 Year
  Sex: Female
  Weight: 70.3 kg

DRUGS (1)
  1. ALAVERT [Suspect]
     Indication: SEASONAL ALLERGY
     Dosage: 10 MG, DAILY
     Route: 048
     Dates: start: 20130509

REACTIONS (2)
  - Epistaxis [Not Recovered/Not Resolved]
  - Alopecia [Not Recovered/Not Resolved]
